FAERS Safety Report 23550083 (Version 1)
Quarter: 2024Q1

REPORT INFORMATION
  Report Type: Spontaneous
  Country: CA (occurrence: CA)
  Receive Date: 20240221
  Receipt Date: 20240221
  Transmission Date: 20240409
  Serious: Yes (Other)
  Sender: FDA-Public Use
  Company Number: CA-TEVA-VS-3158520

PATIENT
  Age: 51 Year
  Sex: Female

DRUGS (2)
  1. LEVETIRACETAM [Suspect]
     Active Substance: LEVETIRACETAM
     Indication: Seizure
     Dosage: DOSE FORM: NOT SPECIFIED
     Route: 065
  2. MELOXICAM [Suspect]
     Active Substance: MELOXICAM
     Indication: Pain management
     Route: 065

REACTIONS (4)
  - Anaphylactic reaction [Unknown]
  - Generalised tonic-clonic seizure [Unknown]
  - Incorrect dose administered [Unknown]
  - Off label use [Unknown]
